FAERS Safety Report 7571759-X (Version None)
Quarter: 2011Q2

REPORT INFORMATION
  Report Type: 
  Country: None (occurrence: None)
  Receive Date: 20110624
  Receipt Date: 20110620
  Transmission Date: 20111010
  Serious: Yes (Other)
  Sender: FDA-Public Use
  Company Number: JP-EISAI INC-E2090-01657-SPO-JP

PATIENT
  Age: 91 Year
  Sex: Female

DRUGS (3)
  1. ZONISAMIDE [Suspect]
     Route: 048
     Dates: start: 20110513, end: 20110620
  2. ANTIHYPERTENSIVE DRUG [Concomitant]
  3. STOMACH MEDICINE [Concomitant]

REACTIONS (1)
  - STEVENS-JOHNSON SYNDROME [None]
